FAERS Safety Report 14900143 (Version 9)
Quarter: 2018Q4

REPORT INFORMATION
  Report Type: Report from Study
  Country: CZ (occurrence: CZ)
  Receive Date: 20180516
  Receipt Date: 20181227
  Transmission Date: 20190204
  Serious: Yes (Other)
  Sender: FDA-Public Use
  Company Number: CZ-VELOXIS PHARMACEUTICALS-2047893

PATIENT
  Age: 59 Year
  Sex: Male

DRUGS (45)
  1. ENVARSUS XR [Suspect]
     Active Substance: TACROLIMUS
     Dosage: 5 MG, QD
     Route: 048
     Dates: start: 20180508, end: 20180626
  2. ENVARSUS XR [Suspect]
     Active Substance: TACROLIMUS
     Dosage: 3 MG, QD
     Dates: start: 20180808, end: 20180904
  3. NADROPARIN CALCIUM [Concomitant]
     Active Substance: NADROPARIN CALCIUM
     Dosage: 1.6 ML, UNK
     Route: 065
     Dates: start: 20180430
  4. AZITROMYCIN [Concomitant]
     Active Substance: AZITHROMYCIN ANHYDROUS
     Indication: PROPHYLAXIS
     Dosage: 214 MG, QD
     Route: 065
     Dates: start: 20180425
  5. OMEPRAZOLE. [Concomitant]
     Active Substance: OMEPRAZOLE
     Indication: PROPHYLAXIS
     Dosage: 40 MG, QD
     Route: 065
     Dates: start: 20180425
  6. VALACICLOVIR [Concomitant]
     Active Substance: VALACYCLOVIR HYDROCHLORIDE
     Indication: PROPHYLAXIS
     Dosage: 1000 MG, QD
     Route: 065
     Dates: start: 20180425
  7. LACTULOSE. [Concomitant]
     Active Substance: LACTULOSE
     Indication: HEPATIC ENCEPHALOPATHY
     Dosage: 2 UNK, UNK
     Route: 065
  8. MYCLAUSEN [Concomitant]
     Active Substance: MYCOPHENOLATE MOFETIL
     Indication: IMMUNOSUPPRESSANT DRUG THERAPY
     Dosage: 2000 UNK, UNK
     Route: 065
     Dates: start: 20180724
  9. ENVARSUS XR [Suspect]
     Active Substance: TACROLIMUS
     Dosage: 8 MG, QD
     Route: 048
     Dates: start: 20180505, end: 20180507
  10. ENVARSUS XR [Suspect]
     Active Substance: TACROLIMUS
     Dosage: 6 MG, QD
     Route: 048
     Dates: start: 20180627, end: 20180710
  11. MYCOPHENOLATE MOFETIL. [Concomitant]
     Active Substance: MYCOPHENOLATE MOFETIL
     Dosage: 2000 UNK, UNK
     Route: 065
     Dates: start: 20180430
  12. NADROPARIN CALCIUM [Concomitant]
     Active Substance: NADROPARIN CALCIUM
     Indication: PROPHYLAXIS
     Dosage: 1.2 ML, QD
     Route: 065
     Dates: start: 20180425
  13. ENVARSUS XR [Suspect]
     Active Substance: TACROLIMUS
     Dosage: 15 MG, QD
     Route: 048
     Dates: start: 20180426, end: 20180426
  14. ENVARSUS XR [Suspect]
     Active Substance: TACROLIMUS
     Dosage: 14 MG
     Route: 048
     Dates: start: 20180501, end: 20180503
  15. MYCOPHENOLATE MOFETIL. [Concomitant]
     Active Substance: MYCOPHENOLATE MOFETIL
     Indication: IMMUNOSUPPRESSANT DRUG THERAPY
     Dosage: 2000 UNK, QD
     Route: 065
     Dates: start: 20180507
  16. HUMAN ALBUMIN [Concomitant]
     Active Substance: ALBUMIN HUMAN
     Indication: MALNUTRITION
     Dosage: 200 ML, QD
     Route: 065
     Dates: start: 20180425
  17. ENVARSUS XR [Suspect]
     Active Substance: TACROLIMUS
     Dosage: 14 MG, QD
     Route: 048
     Dates: start: 20180427, end: 20180427
  18. ENVARSUS XR [Suspect]
     Active Substance: TACROLIMUS
     Dosage: 2 MG, QD
     Route: 048
     Dates: start: 20180905
  19. METHYLPREDNISOLONE. [Concomitant]
     Active Substance: METHYLPREDNISOLONE
     Indication: IMMUNOSUPPRESSANT DRUG THERAPY
     Dosage: 20 UNK, QD
     Route: 065
     Dates: start: 20180507
  20. METHYLPREDNISOLONE. [Concomitant]
     Active Substance: METHYLPREDNISOLONE
     Dosage: 20 UNK, UNK
     Route: 065
     Dates: start: 20180430
  21. METHYLPREDNISOLONE. [Concomitant]
     Active Substance: METHYLPREDNISOLONE
     Dosage: 16 UNK, UNK
     Route: 065
     Dates: start: 20180515
  22. MYCOPHENOLATE MOFETIL. [Concomitant]
     Active Substance: MYCOPHENOLATE MOFETIL
     Dosage: 2000 UNK, UNK
     Route: 065
     Dates: start: 20180515
  23. CALCITRIOL. [Concomitant]
     Active Substance: CALCITRIOL
     Indication: OSTEOPOROSIS
     Dosage: 0.25 UG, UNK
     Route: 065
     Dates: start: 20180502
  24. NADROPARIN CALCIUM [Concomitant]
     Active Substance: NADROPARIN CALCIUM
     Dosage: 1.4 ML, UNK
     Route: 065
  25. ENVARSUS XR [Suspect]
     Active Substance: TACROLIMUS
     Dosage: 10 MG, QD
     Route: 048
     Dates: start: 20180504, end: 20180504
  26. AMPHO MORONAL [Concomitant]
     Active Substance: AMPHOTERICIN B
     Indication: PROPHYLAXIS
     Dosage: 20 ML, QD
     Route: 065
     Dates: start: 20180425
  27. NADROPARIN CALCIUM [Concomitant]
     Active Substance: NADROPARIN CALCIUM
     Dosage: 0.8 ML, UNK
     Route: 065
     Dates: start: 20180430
  28. BISEPTOL [Concomitant]
     Active Substance: SULFAMETHOXAZOLE\TRIMETHOPRIM
     Indication: PROPHYLAXIS
     Dosage: 205 MG, QD
     Route: 065
     Dates: start: 20180425
  29. NOREPINEPHRINE. [Concomitant]
     Active Substance: NOREPINEPHRINE
     Dosage: UNK
  30. ENVARSUS XR [Suspect]
     Active Substance: TACROLIMUS
     Dosage: 4 MG, QD
     Route: 048
     Dates: start: 20180711, end: 20180807
  31. BISOPROLOL FUMARATE. [Concomitant]
     Active Substance: BISOPROLOL FUMARATE
     Indication: MYOCARDIAL ISCHAEMIA
     Dosage: 5 MG, QD
     Route: 065
  32. INSULIN HUMAN [Concomitant]
     Active Substance: INSULIN HUMAN
     Indication: PROPHYLAXIS
     Dosage: 50 U QD
     Route: 065
     Dates: start: 20180425
  33. UNASYN [Concomitant]
     Active Substance: AMPICILLIN SODIUM\SULBACTAM SODIUM
     Indication: PROPHYLAXIS
     Dosage: 4.5 G, QD
     Route: 065
     Dates: start: 20180424
  34. VENTER [Concomitant]
     Indication: PROPHYLAXIS
     Dosage: 4 G, QD
     Route: 065
     Dates: start: 20180425
  35. WARFARIN [Concomitant]
     Active Substance: WARFARIN
     Indication: PROPHYLAXIS
     Dosage: 2.14 MG, UNK
     Route: 065
     Dates: start: 20180724
  36. PREDNISON [Concomitant]
     Active Substance: PREDNISONE
     Dosage: 15 UNK, UNK
     Route: 065
     Dates: start: 20180626
  37. MYCLAUSEN [Concomitant]
     Active Substance: MYCOPHENOLATE MOFETIL
     Dosage: 2000 UNK, UNK
     Route: 065
     Dates: start: 20180626
  38. ENVARSUS XR [Suspect]
     Active Substance: TACROLIMUS
     Indication: LIVER TRANSPLANT
     Dosage: 12 MG, QD
     Route: 048
     Dates: start: 20180425, end: 20180425
  39. ENVARSUS XR [Suspect]
     Active Substance: TACROLIMUS
     Dosage: 16 MG, QD
     Route: 048
     Dates: start: 20180428, end: 20180430
  40. NADROPARIN CALCIUM [Concomitant]
     Active Substance: NADROPARIN CALCIUM
     Dosage: 0.6 ML, UNK
     Route: 065
     Dates: start: 20180522
  41. INSULIN HUMAN [Concomitant]
     Active Substance: INSULIN HUMAN
     Indication: HYPERGLYCAEMIA
  42. NOREPINEPHRINE. [Concomitant]
     Active Substance: NOREPINEPHRINE
     Indication: PROPHYLAXIS
     Dosage: 4 MG, QD
     Route: 065
     Dates: start: 20180424
  43. URSODEOXYCHOLIC ACID [Concomitant]
     Active Substance: URSODIOL
     Indication: PROPHYLAXIS
     Dosage: 750 MG, UNK
     Route: 065
     Dates: start: 20180503
  44. RIFAXIMIN. [Concomitant]
     Active Substance: RIFAXIMIN
     Indication: HEPATIC ENCEPHALOPATHY
     Dosage: 1200 MG, UNK
  45. PREDNISON [Concomitant]
     Active Substance: PREDNISONE
     Indication: IMMUNOSUPPRESSANT DRUG THERAPY
     Dosage: 10 UNK, UNK
     Route: 065
     Dates: start: 20180724

REACTIONS (8)
  - Immunosuppressant drug level increased [Unknown]
  - Renal failure [Recovered/Resolved]
  - Hyperglycaemia [Not Recovered/Not Resolved]
  - Hepatic enzyme increased [Not Recovered/Not Resolved]
  - Renal failure [Recovered/Resolved]
  - Hepatic function abnormal [Recovered/Resolved]
  - Abdominal infection [Recovered/Resolved]
  - Syncope [Recovered/Resolved]

NARRATIVE: CASE EVENT DATE: 20180425
